FAERS Safety Report 23044459 (Version 2)
Quarter: 2025Q4

REPORT INFORMATION
  Report Type: Spontaneous
  Country: US (occurrence: US)
  Receive Date: 20231009
  Receipt Date: 20251117
  Transmission Date: 20260117
  Serious: Yes (Hospitalization)
  Sender: CHEPLAPHARM
  Company Number: US-ROCHE-2880660

PATIENT
  Sex: Male
  Weight: 82.627 kg

DRUGS (21)
  1. CLONAZEPAM [Suspect]
     Active Substance: CLONAZEPAM
     Indication: Anxiety
     Dates: start: 2005
  2. CLONAZEPAM [Suspect]
     Active Substance: CLONAZEPAM
     Indication: Depression
     Dates: start: 2005
  3. CLONAZEPAM [Suspect]
     Active Substance: CLONAZEPAM
     Indication: Bipolar disorder
     Dates: start: 2005
  4. OCREVUS [Suspect]
     Active Substance: OCRELIZUMAB
     Indication: Primary progressive multiple sclerosis
     Route: 042
     Dates: start: 2017
  5. OCREVUS [Suspect]
     Active Substance: OCRELIZUMAB
     Indication: Primary progressive multiple sclerosis
     Dosage: ON AN UNKNOWN DATE IN //2018, SHE STARTED THERAPY WITH INTRAVENOUS OCRELIZUMAB (LOT NUMBER: ASKED...
     Route: 042
     Dates: start: 2018
  6. GABAPENTIN [Concomitant]
     Active Substance: GABAPENTIN
  7. KEPPRA [Concomitant]
     Active Substance: LEVETIRACETAM
  8. TOPAMAX [Concomitant]
     Active Substance: TOPIRAMATE
  9. PROVIGIL [Concomitant]
     Active Substance: MODAFINIL
  10. TOVIAZ [Concomitant]
     Active Substance: FESOTERODINE FUMARATE
  11. SEROQUEL [Concomitant]
     Active Substance: QUETIAPINE FUMARATE
  12. EFFEXOR [Concomitant]
     Active Substance: VENLAFAXINE HYDROCHLORIDE
  13. DEMANNOSE [Concomitant]
     Active Substance: DEMANNOSE
  14. VITAMIN D3 [Concomitant]
     Active Substance: CHOLECALCIFEROL
  15. VITAMIN B6 [Concomitant]
     Active Substance: PYRIDOXINE HYDROCHLORIDE
  16. VITAMIN C [Concomitant]
     Active Substance: ASCORBIC ACID
  17. SENOKOT [Concomitant]
     Active Substance: SENNOSIDES
  18. GILENYA [Concomitant]
     Active Substance: FINGOLIMOD HYDROCHLORIDE
     Indication: Multiple sclerosis
  19. CLOTRIMAZOLE [Concomitant]
     Active Substance: CLOTRIMAZOLE
     Indication: Fungal infection
     Route: 061
  20. TRIAMCINOLONE [Concomitant]
     Active Substance: TRIAMCINOLONE
     Route: 061
  21. BACLOFEN [Concomitant]
     Active Substance: BACLOFEN

REACTIONS (14)
  - Sepsis [Recovered/Resolved]
  - Off label use [Unknown]
  - Bladder spasm [Not Recovered/Not Resolved]
  - Urinary tract infection [Not Recovered/Not Resolved]
  - Tremor [Not Recovered/Not Resolved]
  - COVID-19 [Unknown]
  - Neuropathy peripheral [Not Recovered/Not Resolved]
  - Fungal infection [Not Recovered/Not Resolved]
  - Epilepsy [Not Recovered/Not Resolved]
  - Multiple sclerosis [Not Recovered/Not Resolved]
  - Migraine [Not Recovered/Not Resolved]
  - Anxiety [Not Recovered/Not Resolved]
  - Septic shock [Unknown]
  - Nephrolithiasis [Unknown]

NARRATIVE: CASE EVENT DATE: 20180101
